FAERS Safety Report 9242016 (Version 1)
Quarter: 2013Q2

REPORT INFORMATION
  Report Type: Spontaneous
  Country: US (occurrence: US)
  Receive Date: 20130419
  Receipt Date: 20130419
  Transmission Date: 20140414
  Serious: Yes (Hospitalization, Other)
  Sender: FDA-Public Use
  Company Number: US-NOVEN-13US006571

PATIENT
  Sex: Female
  Weight: 46.26 kg

DRUGS (1)
  1. FENTANYL [Suspect]
     Indication: PAIN
     Dosage: 75 UG/HR, UNK
     Route: 062

REACTIONS (13)
  - Hospitalisation [Recovered/Resolved]
  - Aspiration [Recovered/Resolved]
  - Haemorrhage [None]
  - Lip discolouration [Recovered/Resolved]
  - Cyst [Not Recovered/Not Resolved]
  - Thrombosis [Unknown]
  - Application site erosion [None]
  - Pain [None]
  - Dyspnoea [Not Recovered/Not Resolved]
  - Inadequate analgesia [Not Recovered/Not Resolved]
  - Application site erythema [Not Recovered/Not Resolved]
  - Night sweats [Not Recovered/Not Resolved]
  - Product quality issue [Not Recovered/Not Resolved]
